FAERS Safety Report 4862500-X (Version None)
Quarter: 2005Q4

REPORT INFORMATION
  Report Type: 
  Country: None (occurrence: None)
  Receive Date: 20051219
  Receipt Date: 20051219
  Transmission Date: 20060501
  Serious: Yes (Other)
  Sender: FDA-Public Use
  Company Number: None

PATIENT
  Age: 58 Year
  Sex: Male
  Weight: 72.5755 kg

DRUGS (1)
  1. BIAXIN [Suspect]
     Indication: INFECTION
     Dosage: 500 MG TWO TIMES A DAY PO
     Route: 048
     Dates: start: 19960501, end: 19960501

REACTIONS (3)
  - FLUSHING [None]
  - PRURITUS [None]
  - URTICARIA [None]
